FAERS Safety Report 20992114 (Version 6)
Quarter: 2024Q4

REPORT INFORMATION
  Report Type: Report from Study
  Country: US (occurrence: US)
  Receive Date: 20220622
  Receipt Date: 20241017
  Transmission Date: 20250114
  Serious: Yes (Other)
  Sender: NOVARTIS
  Company Number: US-NOVARTISPH-NVSC2022US142843

PATIENT
  Age: 74 Year
  Sex: Male
  Weight: 89 kg

DRUGS (7)
  1. ENTRESTO [Suspect]
     Active Substance: SACUBITRIL\VALSARTAN
     Indication: Cardiac failure
     Dosage: 1 DOSAGE FORM, BID
     Route: 065
     Dates: start: 20190227
  2. ZYLOPRIM [Concomitant]
     Active Substance: ALLOPURINOL
     Indication: Product used for unknown indication
     Dosage: 300 MG, QD (TABLET)
     Route: 048
  3. PACERONE [Concomitant]
     Active Substance: AMIODARONE HYDROCHLORIDE
     Indication: Product used for unknown indication
     Dosage: 200 MG, OTHER TAKE 2 TABLETS (400 MG) BY MOUTH 2 TIMES DAILY FOR 6 DAYS, THEN 2 TAB (400 MG) DAILY F
     Route: 048
  4. JARDIANCE [Concomitant]
     Active Substance: EMPAGLIFLOZIN
     Indication: Product used for unknown indication
     Dosage: 10 MG, QD
     Route: 048
  5. MELATONIN [Concomitant]
     Active Substance: MELATONIN
     Indication: Product used for unknown indication
     Dosage: 5 MG, QD (CHEW TABLET)
     Route: 048
  6. METOPROLOL SUCCINATE [Concomitant]
     Active Substance: METOPROLOL SUCCINATE
     Indication: Product used for unknown indication
     Dosage: 25 MG, QD (PATIENT TAKING DIFFERENTLY: TAKE 25 MG BY MOUTH EVERY EVENING), TABLET
     Route: 048
  7. ALDACTONE [Concomitant]
     Active Substance: SPIRONOLACTONE
     Indication: Product used for unknown indication
     Dosage: 25 MG, QD (TABLET)
     Route: 048

REACTIONS (9)
  - Arrhythmia [Unknown]
  - Ventricular tachycardia [Unknown]
  - Chest pain [Unknown]
  - Presyncope [Unknown]
  - Cardiomyopathy [Unknown]
  - Dizziness [Unknown]
  - Myocardial fibrosis [Unknown]
  - Dyspnoea exertional [Unknown]
  - Dyspnoea [Unknown]

NARRATIVE: CASE EVENT DATE: 20211120
